FAERS Safety Report 5290911-X (Version None)
Quarter: 2007Q2

REPORT INFORMATION
  Report Type: 
  Country: None (occurrence: None)
  Receive Date: 20070409
  Receipt Date: 20070327
  Transmission Date: 20071010
  Serious: Yes (Life-Threatening)
  Sender: FDA-Public Use
  Company Number: BR-PFIZER INC-2007026089

PATIENT
  Sex: Female

DRUGS (3)
  1. REVATIO [Suspect]
     Indication: PULMONARY HYPERTENSION
     Dates: start: 20061228, end: 20070227
  2. FORASEQ [Concomitant]
  3. SPIRIVA [Concomitant]

REACTIONS (2)
  - GASTRIC DISORDER [None]
  - GASTROINTESTINAL DISORDER [None]
